FAERS Safety Report 7134501-2 (Version None)
Quarter: 2010Q4

REPORT INFORMATION
  Report Type: 
  Country: None (occurrence: None)
  Receive Date: 20101203
  Receipt Date: 20101122
  Transmission Date: 20110411
  Serious: Yes (Hospitalization)
  Sender: FDA-Public Use
  Company Number: DE-ACTELION-A-US2010-41603

PATIENT

DRUGS (2)
  1. ILOPROST INHALATION ROW [Suspect]
     Indication: PULMONARY ARTERIAL HYPERTENSION
     Dosage: UNK
     Route: 055
     Dates: start: 20081029
  2. SILDENAFIL [Concomitant]

REACTIONS (2)
  - CARDIAC FAILURE [None]
  - SKIN ULCER [None]
